FAERS Safety Report 5922611-4 (Version None)
Quarter: 2008Q4

REPORT INFORMATION
  Report Type: 
  Country: None (occurrence: None)
  Receive Date: 20081017
  Receipt Date: 20081009
  Transmission Date: 20090506
  Serious: Yes (Death, Hospitalization)
  Sender: FDA-Public Use
  Company Number: PHHY2008SE12415

PATIENT
  Sex: Male

DRUGS (4)
  1. EXELON [Suspect]
     Indication: DEMENTIA ALZHEIMER'S TYPE
     Dosage: 9.5 MG/24 HOURS
     Route: 062
     Dates: start: 20080101
  2. EXELON [Suspect]
     Dosage: 6 PATCHES
     Route: 062
     Dates: start: 20080625
  3. EXELON [Suspect]
     Dosage: 6 PATCHES
     Route: 062
     Dates: start: 20080626, end: 20080626
  4. ANTIDEPRESSANTS [Concomitant]

REACTIONS (11)
  - ADVERSE DRUG REACTION [None]
  - ANURIA [None]
  - DEHYDRATION [None]
  - FALL [None]
  - HYPERHIDROSIS [None]
  - MEDICATION ERROR [None]
  - OVERDOSE [None]
  - RENAL DISORDER [None]
  - RENAL FAILURE ACUTE [None]
  - URINARY TRACT INFECTION [None]
  - VOMITING [None]
